FAERS Safety Report 20949610 (Version 1)
Quarter: 2022Q2

REPORT INFORMATION
  Report Type: Spontaneous
  Country: US (occurrence: US)
  Receive Date: 20220613
  Receipt Date: 20220613
  Transmission Date: 20220721
  Serious: Yes (Other)
  Sender: FDA-Public Use
  Company Number: US-AMGEN-USASP2022098433

PATIENT

DRUGS (2)
  1. IVABRADINE [Suspect]
     Active Substance: IVABRADINE
     Indication: Ventricular arrhythmia
     Dosage: UNK
     Route: 048
  2. IVABRADINE [Suspect]
     Active Substance: IVABRADINE
     Indication: Off label use

REACTIONS (9)
  - Ventricular extrasystoles [Unknown]
  - Ventricular tachycardia [Unknown]
  - Syncope [Unknown]
  - Palpitations [Unknown]
  - Hyperhidrosis [Unknown]
  - Compensatory sweating [Unknown]
  - Dyspnoea [Unknown]
  - Fatigue [Unknown]
  - Off label use [Unknown]
